FAERS Safety Report 4314798-4 (Version None)
Quarter: 2004Q1

REPORT INFORMATION
  Report Type: 
  Country: None (occurrence: None)
  Receive Date: 20040308
  Receipt Date: 20040226
  Transmission Date: 20041129
  Serious: Yes (Hospitalization)
  Sender: FDA-Public Use
  Company Number: HQWYE375226FEB04

PATIENT
  Sex: Female

DRUGS (1)
  1. PANTOZOL (PANTOPRAZOLE, UNSPEC) [Suspect]

REACTIONS (1)
  - NEPHRITIS [None]
